FAERS Safety Report 25613123 (Version 1)
Quarter: 2025Q3

REPORT INFORMATION
  Report Type: Spontaneous
  Country: US (occurrence: None)
  Receive Date: 20250726
  Receipt Date: 20250726
  Transmission Date: 20251020
  Serious: No
  Sender: FDA-CTU
  Company Number: None

PATIENT

DRUGS (1)
  1. PAXIL [Suspect]
     Active Substance: PAROXETINE HYDROCHLORIDE
     Indication: Product used for unknown indication
     Dates: start: 20130201, end: 20231114

REACTIONS (15)
  - Sexual dysfunction [None]
  - Withdrawal syndrome [None]
  - Insomnia [None]
  - Neuralgia [None]
  - Emotional disorder [None]
  - Intrusive thoughts [None]
  - Feeling of body temperature change [None]
  - Vitreous floaters [None]
  - Palmar erythema [None]
  - Abdominal pain [None]
  - Influenza like illness [None]
  - Depersonalisation/derealisation disorder [None]
  - Chronic fatigue syndrome [None]
  - Hepatic enzyme increased [None]
  - Glucose tolerance impaired [None]

NARRATIVE: CASE EVENT DATE: 20250726
